FAERS Safety Report 10609758 (Version 3)
Quarter: 2015Q1

REPORT INFORMATION
  Report Type: Spontaneous
  Country: US (occurrence: None)
  Receive Date: 20141124
  Receipt Date: 20150130
  Transmission Date: 20150720
  Serious: Yes (Hospitalization, Other)
  Sender: FDA-Public Use
  Company Number: 2014-US-015121

PATIENT
  Age: 62 Year
  Sex: Female
  Weight: 95.2 kg

DRUGS (1)
  1. XYREM [Suspect]
     Active Substance: SODIUM OXYBATE
     Indication: NARCOLEPSY
     Route: 048
     Dates: start: 200710

REACTIONS (4)
  - Squamous cell carcinoma of lung [None]
  - Tracheal cancer [None]
  - Pain [None]
  - Throat cancer [None]

NARRATIVE: CASE EVENT DATE: 201411
